FAERS Safety Report 12936147 (Version 1)
Quarter: 2016Q4

REPORT INFORMATION
  Report Type: Spontaneous
  Country: US (occurrence: US)
  Receive Date: 20161111
  Receipt Date: 20161111
  Transmission Date: 20170207
  Serious: Yes (Hospitalization)
  Sender: FDA-Public Use
  Company Number: None

PATIENT
  Age: 84 Year
  Sex: Male
  Weight: 63.9 kg

DRUGS (1)
  1. RUXOLITINIB [Suspect]
     Active Substance: RUXOLITINIB
     Indication: CHRONIC LEUKAEMIA
     Route: 048
     Dates: start: 20160506, end: 20160518

REACTIONS (7)
  - White blood cell count decreased [None]
  - Face injury [None]
  - Weight decreased [None]
  - Fall [None]
  - Haemorrhage [None]
  - Lip injury [None]
  - Depressed mood [None]

NARRATIVE: CASE EVENT DATE: 20160519
